FAERS Safety Report 15627197 (Version 1)
Quarter: 2018Q4

REPORT INFORMATION
  Report Type: Spontaneous
  Country: US (occurrence: US)
  Receive Date: 20181116
  Receipt Date: 20181116
  Transmission Date: 20190205
  Serious: Yes (Life-Threatening, Disabling, Other)
  Sender: FDA-Public Use
  Company Number: None

PATIENT
  Age: 59 Day
  Sex: Female
  Weight: 85.5 kg

DRUGS (22)
  1. AMLODIPINE [Concomitant]
     Active Substance: AMLODIPINE BESYLATE
  2. VITAMIN D3 [Concomitant]
     Active Substance: CHOLECALCIFEROL
  3. CALCIUM [Concomitant]
     Active Substance: CALCIUM
  4. METAXALONE. [Concomitant]
     Active Substance: METAXALONE
  5. COENZYME Q10 [Concomitant]
     Active Substance: UBIDECARENONE
  6. SYNTHROID [Concomitant]
     Active Substance: LEVOTHYROXINE SODIUM
  7. BUTRANS [Concomitant]
     Active Substance: BUPRENORPHINE
  8. CLONAZEPAM. [Concomitant]
     Active Substance: CLONAZEPAM
  9. LUTEIN [Concomitant]
     Active Substance: LUTEIN
  10. BIOTIN [Concomitant]
     Active Substance: BIOTIN
  11. PROBIOTIC [Concomitant]
     Active Substance: PROBIOTICS NOS
  12. NORCO/ACETAMENOPHEN [Concomitant]
  13. CLONIDINE. [Concomitant]
     Active Substance: CLONIDINE
  14. MULTIVIT SNS FE [Concomitant]
  15. GABAPENTIN. [Concomitant]
     Active Substance: GABAPENTIN
  16. TOPAMAX [Concomitant]
     Active Substance: TOPIRAMATE
  17. KRILL OIL [Concomitant]
     Active Substance: DIETARY SUPPLEMENT
  18. EGGSHEE MEMEBRANE [Concomitant]
  19. SELENIUM [Concomitant]
     Active Substance: SELENIUM
  20. PRIALT [Suspect]
     Active Substance: ZICONOTIDE ACETATE
     Indication: SPINAL PAIN
     Dosage: ?          OTHER FREQUENCY:20CC PUMP;?
     Route: 008
     Dates: start: 20181004, end: 20181023
  21. MELATONIN [Concomitant]
     Active Substance: MELATONIN
  22. MAG GLYCINATE [Concomitant]

REACTIONS (12)
  - Muscle spasms [None]
  - Anxiety [None]
  - Hyperhidrosis [None]
  - Hallucination, auditory [None]
  - Fatigue [None]
  - Dyspnoea [None]
  - Psychotic disorder [None]
  - Rash [None]
  - Muscular weakness [None]
  - Hallucination, visual [None]
  - Therapy change [None]
  - Palpitations [None]

NARRATIVE: CASE EVENT DATE: 20181004
